FAERS Safety Report 9029094 (Version 2)
Quarter: 2013Q1

REPORT INFORMATION
  Report Type: Spontaneous
  Country: US (occurrence: US)
  Receive Date: 20130122
  Receipt Date: 20130228
  Transmission Date: 20140127
  Serious: Yes (Other)
  Sender: FDA-Public Use
  Company Number: US-PFIZER INC-2013026649

PATIENT
  Age: 28 Year
  Sex: Male
  Weight: 79.37 kg

DRUGS (4)
  1. LIPITOR [Suspect]
     Indication: BLOOD CHOLESTEROL INCREASED
     Dosage: 10 MG, DAILY
     Dates: start: 1986
  2. HYDROCODONE [Concomitant]
     Indication: PAIN
     Dosage: 500 MG, DAILY
  3. TRAMADOL [Concomitant]
     Indication: PAIN
     Dosage: UNK, AS NEEDED
  4. SYNTHROID [Concomitant]
     Dosage: 100 UG, DAILY

REACTIONS (2)
  - Thrombosis [Not Recovered/Not Resolved]
  - Thrombosis [Not Recovered/Not Resolved]
